FAERS Safety Report 18550564 (Version 5)
Quarter: 2020Q4

REPORT INFORMATION
  Report Type: Spontaneous
  Country: IE (occurrence: IE)
  Receive Date: 20201126
  Receipt Date: 20201230
  Transmission Date: 20210114
  Serious: Yes (Other)
  Sender: FDA-Public Use
  Company Number: IE-JNJFOC-20201130384

PATIENT
  Age: 55 Year
  Sex: Male

DRUGS (21)
  1. DUROGESIC D-TRANS [Suspect]
     Active Substance: FENTANYL
     Indication: PRODUCT USED FOR UNKNOWN INDICATION
     Dosage: 100 MCG/HR
     Route: 062
  2. DUROGESIC D-TRANS [Suspect]
     Active Substance: FENTANYL
  3. DUROGESIC D-TRANS [Suspect]
     Active Substance: FENTANYL
  4. DUROGESIC D-TRANS [Suspect]
     Active Substance: FENTANYL
     Indication: PRODUCT USED FOR UNKNOWN INDICATION
     Dosage: UNKNOWN
     Route: 062
  5. BACLOPAR [Concomitant]
  6. DUROGESIC D-TRANS [Suspect]
     Active Substance: FENTANYL
  7. DUROGESIC D-TRANS [Suspect]
     Active Substance: FENTANYL
  8. DUROGESIC D-TRANS [Suspect]
     Active Substance: FENTANYL
  9. DUROGESIC D-TRANS [Suspect]
     Active Substance: FENTANYL
  10. DUROGESIC D-TRANS [Suspect]
     Active Substance: FENTANYL
  11. FOLIC ACID. [Concomitant]
     Active Substance: FOLIC ACID
  12. DUROGESIC D-TRANS [Suspect]
     Active Substance: FENTANYL
  13. DUROGESIC D-TRANS [Suspect]
     Active Substance: FENTANYL
  14. DUROGESIC D-TRANS [Suspect]
     Active Substance: FENTANYL
  15. PREGABALIN. [Concomitant]
     Active Substance: PREGABALIN
  16. MIRTAZAPINE. [Concomitant]
     Active Substance: MIRTAZAPINE
  17. DUROGESIC D-TRANS [Suspect]
     Active Substance: FENTANYL
  18. DUROGESIC D-TRANS [Suspect]
     Active Substance: FENTANYL
  19. DUROGESIC D-TRANS [Suspect]
     Active Substance: FENTANYL
  20. DUROGESIC D-TRANS [Suspect]
     Active Substance: FENTANYL
  21. DEXONE [DEXAMETHASONE] [Concomitant]

REACTIONS (2)
  - Bedridden [Unknown]
  - Product adhesion issue [Not Recovered/Not Resolved]
